FAERS Safety Report 4995959-8 (Version None)
Quarter: 2006Q2

REPORT INFORMATION
  Report Type: 
  Country: None (occurrence: None)
  Receive Date: 20060508
  Receipt Date: 20050509
  Transmission Date: 20061013
  Serious: Yes (Hospitalization)
  Sender: FDA-Public Use
  Company Number: US-MERCK-0505USA01075

PATIENT
  Age: 58 Year
  Sex: Female
  Weight: 181 kg

DRUGS (8)
  1. VIOXX [Suspect]
     Indication: ARTHRITIS
     Route: 048
     Dates: start: 19990901, end: 20000101
  2. VIOXX [Suspect]
     Route: 048
     Dates: start: 20000101, end: 20030901
  3. VIOXX [Suspect]
     Indication: BACK PAIN
     Route: 048
     Dates: start: 19990901, end: 20000101
  4. VIOXX [Suspect]
     Route: 048
     Dates: start: 20000101, end: 20030901
  5. DEMADEX [Concomitant]
     Route: 048
  6. ALLOPURINOL [Concomitant]
     Route: 048
  7. ACCUPRIL [Concomitant]
     Route: 048
  8. K-DUR 10 [Concomitant]
     Route: 048

REACTIONS (5)
  - BACK PAIN [None]
  - HYPERTENSION [None]
  - MUSCLE SPASMS [None]
  - MYOCARDIAL INFARCTION [None]
  - PNEUMONIA [None]
